FAERS Safety Report 24270433 (Version 2)
Quarter: 2024Q4

REPORT INFORMATION
  Report Type: Other
  Country: DE (occurrence: DE)
  Receive Date: 20240830
  Receipt Date: 20241212
  Transmission Date: 20250115
  Serious: No
  Sender: SIGA TECHNOLOGIES, INC.
  Company Number: DE-SIGA Technologies, Inc.-2161065

PATIENT
  Age: 31 Year
  Sex: Male

DRUGS (2)
  1. TPOXX [Suspect]
     Active Substance: TECOVIRIMAT
     Indication: Monkeypox
  2. BICTEGRAVIR\EMTRICITABINE\TENOFOVIR ALAFENAMIDE [Concomitant]
     Active Substance: BICTEGRAVIR\EMTRICITABINE\TENOFOVIR ALAFENAMIDE

REACTIONS (2)
  - Transaminases increased [Recovered/Resolved]
  - Drug resistance [Recovered/Resolved]
